FAERS Safety Report 12531942 (Version 1)
Quarter: 2016Q3

REPORT INFORMATION
  Report Type: Spontaneous
  Country: JP (occurrence: JP)
  Receive Date: 20160706
  Receipt Date: 20160706
  Transmission Date: 20161109
  Serious: Yes (Other)
  Sender: FDA-Public Use
  Company Number: JP-MEDA-2016070011

PATIENT
  Age: 85 Year
  Sex: Male

DRUGS (2)
  1. LUPRAC [Suspect]
     Active Substance: TORSEMIDE
     Indication: PERIPHERAL SWELLING
     Route: 048
  2. DIART [Concomitant]
     Active Substance: AZOSEMIDE

REACTIONS (1)
  - Renal impairment [Unknown]
